FAERS Safety Report 11811248 (Version 2)
Quarter: 2016Q1

REPORT INFORMATION
  Report Type: Spontaneous
  Country: US (occurrence: US)
  Receive Date: 20151208
  Receipt Date: 20160115
  Transmission Date: 20160525
  Serious: No
  Sender: FDA-Public Use
  Company Number: US-LUNDBECK-DKLU2006957

PATIENT
  Age: 84 Year
  Sex: Male

DRUGS (1)
  1. NORTHERA [Suspect]
     Active Substance: DROXIDOPA
     Indication: PRODUCT USED FOR UNKNOWN INDICATION
     Route: 065
     Dates: start: 201511

REACTIONS (8)
  - Tremor [Unknown]
  - Chest pain [Unknown]
  - Dyspnoea [Unknown]
  - Malaise [Unknown]
  - Asthenia [Unknown]
  - Blood pressure fluctuation [Unknown]
  - Confusional state [Unknown]
  - Dizziness [Not Recovered/Not Resolved]

NARRATIVE: CASE EVENT DATE: 201511
